FAERS Safety Report 8176067-4 (Version None)
Quarter: 2012Q1

REPORT INFORMATION
  Report Type: 
  Country: None (occurrence: None)
  Receive Date: 20120301
  Receipt Date: 20120228
  Transmission Date: 20120608
  Serious: Yes (Death, Hospitalization, Other)
  Sender: FDA-Public Use
  Company Number: JP-BAYER-201012769BYL

PATIENT
  Age: 77 Year
  Sex: Female
  Weight: 41.1 kg

DRUGS (18)
  1. TS 1 [Suspect]
     Indication: HEPATIC NEOPLASM MALIGNANT
     Dosage: 100 MG, QD
     Dates: start: 20100730, end: 20100812
  2. IRON SUCROSE [Concomitant]
     Dosage: 40 MG, QD
     Route: 042
     Dates: start: 20100521, end: 20100521
  3. FERROUS CITRATE [Concomitant]
     Dosage: 200 MG, QD
     Route: 048
     Dates: start: 20100529, end: 20100603
  4. ACTARIT [Concomitant]
     Dosage: 300 MG, QD
     Route: 048
     Dates: start: 20010821
  5. ADALAT CC [Concomitant]
     Dosage: 20 MG, QD
     Route: 048
  6. PEGASYS [Suspect]
     Indication: HEPATIC NEOPLASM MALIGNANT
     Dosage: 90 ?G, Q2WK
     Route: 058
     Dates: start: 20100730, end: 20100820
  7. NEXAVAR [Suspect]
     Dosage: 400 MG, QD
     Route: 048
     Dates: start: 20100604, end: 20100722
  8. WARFARIN SODIUM [Concomitant]
     Dosage: 3.7 MG, QD
     Route: 048
     Dates: end: 20100923
  9. PEGASYS [Suspect]
     Dosage: 90 ?G, Q2WK
     Route: 058
     Dates: start: 20100903, end: 20100917
  10. PRAVASTATIN [Concomitant]
     Dosage: 10 MG, QD
     Route: 048
  11. TS 1 [Suspect]
     Dosage: 100 MG, QD
     Dates: start: 20100903, end: 20100916
  12. IRON SUCROSE [Concomitant]
     Dosage: 40 MG, QD
     Route: 042
     Dates: start: 20100528, end: 20100528
  13. ALENDRONATE SODIUM [Concomitant]
     Dosage: 5 MG, QD
     Route: 048
  14. NEXAVAR [Suspect]
     Indication: HEPATIC NEOPLASM MALIGNANT
     Dosage: 600 MG, QD
     Route: 048
     Dates: start: 20100528, end: 20100603
  15. IRON SUCROSE [Concomitant]
     Dosage: 40 MG, QD
     Route: 042
     Dates: start: 20100524, end: 20100524
  16. URSO 250 [Concomitant]
     Dosage: 400 MG, QD
     Route: 048
  17. RADEN [Concomitant]
     Dosage: 300 MG, QD
     Route: 048
  18. ZANTAC [Concomitant]
     Dosage: 300 MG, QD
     Route: 048
     Dates: start: 20100604, end: 20100923

REACTIONS (6)
  - SEPSIS [None]
  - DECREASED APPETITE [None]
  - FATIGUE [None]
  - ASPARTATE AMINOTRANSFERASE INCREASED [None]
  - HEPATIC FUNCTION ABNORMAL [None]
  - HEPATIC FAILURE [None]
